FAERS Safety Report 21591385 (Version 3)
Quarter: 2023Q1

REPORT INFORMATION
  Report Type: Spontaneous
  Country: US (occurrence: US)
  Receive Date: 20221114
  Receipt Date: 20230125
  Transmission Date: 20230418
  Serious: Yes (Hospitalization, Other)
  Sender: FDA-Public Use
  Company Number: US-MALLINCKRODT-T202205820

PATIENT
  Sex: Male

DRUGS (1)
  1. H.P. ACTHAR [Suspect]
     Active Substance: CORTICOTROPIN
     Indication: Pulmonary sarcoidosis
     Dosage: 1 MILLILITER (80 UNITS), EVERY 3 DAYS
     Route: 058
     Dates: start: 202211

REACTIONS (8)
  - Cardiac disorder [Not Recovered/Not Resolved]
  - Cardiac operation [Unknown]
  - COVID-19 [Unknown]
  - Urinary retention [Unknown]
  - Hypotension [Unknown]
  - Tooth extraction [Unknown]
  - Pulmonary oedema [Unknown]
  - Tooth disorder [Unknown]

NARRATIVE: CASE EVENT DATE: 20220101
